FAERS Safety Report 13814527 (Version 1)
Quarter: 2017Q3

REPORT INFORMATION
  Report Type: Not Available
  Country: TR (occurrence: TR)
  Receive Date: 20170731
  Receipt Date: 20170731
  Transmission Date: 20171127
  Serious: Yes (Other)
  Sender: FDA-Public Use
  Company Number: TR-ANIPHARMA-2017-TR-000023

PATIENT
  Age: 11 Year
  Sex: Male

DRUGS (1)
  1. RISPERIDONE (NON-SPECIFIC) [Suspect]
     Active Substance: RISPERIDONE
     Dosage: 1MG/DAY

REACTIONS (2)
  - Condition aggravated [Unknown]
  - Hyperacusis [Unknown]
